FAERS Safety Report 6122734-3 (Version None)
Quarter: 2009Q1

REPORT INFORMATION
  Report Type: 
  Country: None (occurrence: None)
  Receive Date: 20090318
  Receipt Date: 20090309
  Transmission Date: 20090719
  Serious: Yes (Death)
  Sender: FDA-Public Use
  Company Number: US-AMGEN-QUU336138

PATIENT
  Sex: Male
  Weight: 54.5 kg

DRUGS (21)
  1. NEUPOGEN [Suspect]
     Indication: CHEMOTHERAPY
     Route: 050
     Dates: start: 20071203, end: 20080131
  2. ARANESP [Suspect]
     Indication: ANAEMIA OF MALIGNANT DISEASE
     Dates: start: 20080121, end: 20080208
  3. ALIMTA [Concomitant]
     Dates: start: 20081112, end: 20081231
  4. CISPLATIN [Concomitant]
     Dates: start: 20080404, end: 20080528
  5. IRINOTECAN HCL [Concomitant]
     Dates: start: 20080404, end: 20080528
  6. DECADRON [Concomitant]
     Dates: start: 20081112, end: 20081231
  7. CARBOPLATIN [Concomitant]
     Dates: start: 20070920, end: 20080307
  8. TAXOTERE [Concomitant]
     Dates: start: 20070920, end: 20080107
  9. GEMZAR [Concomitant]
     Dates: start: 20080107, end: 20080307
  10. PROMETHAZINE [Concomitant]
     Route: 048
     Dates: start: 20070920
  11. DEXAMETHASONE TAB [Concomitant]
     Route: 048
     Dates: start: 20070920
  12. PEPCID [Concomitant]
     Dates: start: 20070920
  13. MAALOX [Concomitant]
     Dates: start: 20070920
  14. AMOXICILLIN [Concomitant]
     Route: 048
     Dates: start: 20071112
  15. DIFLUCAN [Concomitant]
     Route: 048
     Dates: start: 20071126
  16. NYSTATIN [Concomitant]
     Route: 048
     Dates: start: 20071126
  17. UNSPECIFIED MEDICATION [Concomitant]
     Dates: start: 20081112
  18. MULTI-VITAMINS [Concomitant]
  19. TARCEVA [Concomitant]
     Route: 048
     Dates: start: 20080612
  20. MULTI-VITAMINS [Concomitant]
     Dates: start: 20080709
  21. VITAMIN B-12 [Concomitant]
     Route: 048
     Dates: start: 20081107

REACTIONS (1)
  - LUNG CANCER METASTATIC [None]
